FAERS Safety Report 25704037 (Version 4)
Quarter: 2025Q4

REPORT INFORMATION
  Report Type: Spontaneous
  Country: JP (occurrence: JP)
  Receive Date: 20250820
  Receipt Date: 20251219
  Transmission Date: 20260117
  Serious: Yes (Life-Threatening, Hospitalization)
  Sender: RADIUS PHARM
  Company Number: JP-RADIUS HEALTH INC.-JP-RADIUS-25051044

PATIENT
  Age: 98 Year
  Sex: Female

DRUGS (1)
  1. ABALOPARATIDE [Suspect]
     Active Substance: ABALOPARATIDE
     Indication: Osteoporosis
     Dosage: 80 MICROGRAM, QD
     Route: 058
     Dates: start: 20250704, end: 20250704

REACTIONS (3)
  - Blood pressure decreased [Unknown]
  - Depressed level of consciousness [Unknown]
  - Cholinergic syndrome [Unknown]

NARRATIVE: CASE EVENT DATE: 20250704
